FAERS Safety Report 5595232-3 (Version None)
Quarter: 2008Q1

REPORT INFORMATION
  Report Type: 
  Country: None (occurrence: None)
  Receive Date: 20080117
  Receipt Date: 20080110
  Transmission Date: 20080703
  Serious: Yes (Other)
  Sender: FDA-Public Use
  Company Number: US-PFIZER INC-2007032723

PATIENT
  Sex: Female

DRUGS (6)
  1. CELEBREX [Suspect]
     Route: 048
  2. BEXTRA [Suspect]
     Indication: PAIN MANAGEMENT
     Route: 048
     Dates: start: 20020314
  3. VIOXX [Suspect]
     Indication: ARTHRITIS
     Route: 048
  4. HYDROCODONE [Concomitant]
     Indication: ARTHRITIS
     Dates: start: 20011126, end: 20031005
  5. DEPO-PROVERA [Concomitant]
     Indication: CONTRACEPTION
     Dates: start: 20010201
  6. METHOTREXATE [Concomitant]
     Indication: SYSTEMIC LUPUS ERYTHEMATOSUS
     Dates: start: 20020211

REACTIONS (4)
  - DEEP VEIN THROMBOSIS [None]
  - DEPRESSION [None]
  - MYOCARDIAL INFARCTION [None]
  - POST-TRAUMATIC STRESS DISORDER [None]
